FAERS Safety Report 9235814 (Version 2)
Quarter: 2013Q4

REPORT INFORMATION
  Report Type: Spontaneous
  Country: FI (occurrence: FI)
  Receive Date: 20130417
  Receipt Date: 20131203
  Transmission Date: 20140711
  Serious: Yes (Other)
  Sender: FDA-Public Use
  Company Number: PHHY2013FI037063

PATIENT
  Age: 28 Year
  Sex: Female

DRUGS (1)
  1. GILENYA [Suspect]
     Indication: MULTIPLE SCLEROSIS
     Route: 048

REACTIONS (10)
  - Multiple sclerosis relapse [Unknown]
  - Optic neuritis [Recovered/Resolved]
  - Central nervous system lesion [Unknown]
  - Balance disorder [Recovered/Resolved]
  - Musculoskeletal stiffness [Recovered/Resolved]
  - Sensory disturbance [Unknown]
  - Hypoaesthesia [Unknown]
  - Clumsiness [Unknown]
  - Full blood count decreased [Unknown]
  - Lymphocyte count decreased [Recovered/Resolved]
